FAERS Safety Report 5624509-8 (Version None)
Quarter: 2008Q1

REPORT INFORMATION
  Report Type: 
  Country: None (occurrence: None)
  Receive Date: 20080211
  Receipt Date: 20080211
  Transmission Date: 20080703
  Serious: Yes (Other)
  Sender: FDA-Public Use
  Company Number: None

PATIENT
  Age: 33 Year
  Sex: Female
  Weight: 48.5349 kg

DRUGS (1)
  1. ZICAM COLD RELIEF [Suspect]
     Indication: NASOPHARYNGITIS
     Dosage: PUMPED ONCE JUST ONCE NASAL
     Route: 045
     Dates: start: 20080203

REACTIONS (5)
  - AGEUSIA [None]
  - ANOSMIA [None]
  - BURNING SENSATION [None]
  - DYSPNOEA [None]
  - SINUS HEADACHE [None]
